FAERS Safety Report 6679523-0 (Version None)
Quarter: 2010Q2

REPORT INFORMATION
  Report Type: 
  Country: None (occurrence: None)
  Receive Date: 20100413
  Receipt Date: 20100331
  Transmission Date: 20101027
  Serious: Yes (Other)
  Sender: FDA-Public Use
  Company Number: PHHY2010NL20558

PATIENT
  Sex: Male

DRUGS (7)
  1. ZOMETA [Suspect]
     Dosage: 4 MG/ 5 ML
     Dates: start: 20091014
  2. ZOMETA [Suspect]
     Dosage: 4 MG/ 5 ML
     Dates: start: 20091111
  3. ZOMETA [Suspect]
     Dosage: 4 MG/ 5 ML
     Dates: start: 20091209
  4. ZOMETA [Suspect]
     Dosage: 4 MG/ 5 ML
     Dates: start: 20100106
  5. ZOMETA [Suspect]
     Dosage: 4 MG/ 5 ML
     Dates: start: 20100203
  6. ZOMETA [Suspect]
     Dosage: 4 MG/ 5 ML
     Dates: start: 20100303
  7. ZOMETA [Suspect]
     Dosage: 4 MG/ 5 ML
     Dates: start: 20100331

REACTIONS (5)
  - DYSPNOEA [None]
  - GAIT DISTURBANCE [None]
  - GENERAL PHYSICAL HEALTH DETERIORATION [None]
  - PARAESTHESIA [None]
  - PROSTATE CANCER METASTATIC [None]
